FAERS Safety Report 9252479 (Version 3)
Quarter: 2013Q2

REPORT INFORMATION
  Report Type: Spontaneous
  Country: BR (occurrence: BR)
  Receive Date: 20130424
  Receipt Date: 20130522
  Transmission Date: 20140414
  Serious: No
  Sender: FDA-Public Use
  Company Number: BR-B.I. PHARMACEUTICALS,INC./RIDGEFIELD-2013-BR-00434BR

PATIENT
  Age: 44 Year
  Sex: Female

DRUGS (2)
  1. TRAYENTA [Suspect]
     Indication: DIABETES MELLITUS
     Route: 048
     Dates: start: 201212, end: 20130410
  2. GLIFAGE [Concomitant]
     Indication: DIABETES MELLITUS

REACTIONS (2)
  - Rash generalised [Recovered/Resolved]
  - Rash generalised [Recovered/Resolved]
